FAERS Safety Report 19252826 (Version 1)
Quarter: 2021Q2

REPORT INFORMATION
  Report Type: Spontaneous
  Country: US (occurrence: US)
  Receive Date: 20210513
  Receipt Date: 20210513
  Transmission Date: 20210717
  Serious: Yes (Death)
  Sender: FDA-Public Use
  Company Number: None

PATIENT
  Age: 59 Year
  Sex: Male
  Weight: 103 kg

DRUGS (3)
  1. YESCARTA [Suspect]
     Active Substance: AXICABTAGENE CILOLEUCEL
     Indication: DIFFUSE LARGE B-CELL LYMPHOMA
     Dates: start: 20210423, end: 20210423
  2. DEXAMETHASONE. [Concomitant]
     Active Substance: DEXAMETHASONE
  3. PROPHYLACTIC STEROIDS [Concomitant]

REACTIONS (11)
  - Mucormycosis [None]
  - Neurotoxicity [None]
  - Atrial fibrillation [None]
  - Bacteraemia [None]
  - Disseminated intravascular coagulation [None]
  - Hydrocephalus [None]
  - Encephalitis [None]
  - Gastrointestinal haemorrhage [None]
  - Small intestinal perforation [None]
  - Necrosis [None]
  - Pancytopenia [None]

NARRATIVE: CASE EVENT DATE: 20210428
